FAERS Safety Report 4783005-0 (Version None)
Quarter: 2005Q3

REPORT INFORMATION
  Report Type: 
  Country: None (occurrence: None)
  Receive Date: 20050929
  Receipt Date: 20050615
  Transmission Date: 20060218
  Serious: Yes (Death)
  Sender: FDA-Public Use
  Company Number: 2005AP03311

PATIENT
  Age: 79 Year
  Sex: Male
  Weight: 60 kg

DRUGS (3)
  1. MEROPENEM [Suspect]
     Indication: PNEUMONIA
     Route: 041
     Dates: start: 20041006, end: 20041012
  2. CEFMETAZON [Concomitant]
     Indication: PNEUMONIA
     Route: 041
     Dates: start: 20041001, end: 20041005
  3. BLOOD TRANSFUSION [Concomitant]
     Indication: WHOLE BLOOD TRANSFUSION
     Dates: start: 20041014, end: 20041016

REACTIONS (1)
  - INTERSTITIAL LUNG DISEASE [None]
